FAERS Safety Report 8062197-4 (Version None)
Quarter: 2012Q1

REPORT INFORMATION
  Report Type: 
  Country: None (occurrence: None)
  Receive Date: 20120120
  Receipt Date: 20120120
  Transmission Date: 20120608
  Serious: Yes (Other)
  Sender: FDA-Public Use
  Company Number: None

PATIENT
  Sex: Female

DRUGS (2)
  1. NORTREL 0.5/35-21 [Suspect]
     Indication: DYSMENORRHOEA
     Dosage: 1 PO DAILY
     Route: 048
  2. NORTREL 0.5/35-21 [Suspect]
     Indication: ENDOMETRIOSIS
     Dosage: 1 PO DAILY
     Route: 048

REACTIONS (2)
  - RASH [None]
  - DRUG INEFFECTIVE [None]
